FAERS Safety Report 5223909-8 (Version None)
Quarter: 2007Q1

REPORT INFORMATION
  Report Type: 
  Country: None (occurrence: None)
  Receive Date: 20070130
  Receipt Date: 20070124
  Transmission Date: 20070707
  Serious: Yes (Other)
  Sender: FDA-Public Use
  Company Number: 2007UW01549

PATIENT
  Age: 83 Year
  Sex: Female
  Weight: 66.2 kg

DRUGS (6)
  1. NEXIUM [Suspect]
     Indication: GASTROOESOPHAGEAL REFLUX DISEASE
     Route: 048
  2. FORTEO [Concomitant]
  3. CALCIUM [Concomitant]
  4. VITAMIN D [Concomitant]
  5. FISH OIL [Concomitant]
  6. CENTRUM SILVER [Concomitant]

REACTIONS (3)
  - HIP ARTHROPLASTY [None]
  - PELVIC FRACTURE [None]
  - WRIST FRACTURE [None]
